FAERS Safety Report 7267919-8 (Version None)
Quarter: 2011Q1

REPORT INFORMATION
  Report Type: 
  Country: None (occurrence: None)
  Receive Date: 20110201
  Receipt Date: 20110127
  Transmission Date: 20110831
  Serious: Yes (Hospitalization, Disabling, Other)
  Sender: FDA-Public Use
  Company Number: DE-BRISTOL-MYERS SQUIBB COMPANY-15013956

PATIENT
  Age: 66 Year
  Sex: Female
  Weight: 50 kg

DRUGS (2)
  1. CISPLATIN [Suspect]
     Indication: GASTROOESOPHAGEAL CANCER
     Dosage: ON DAY 1 OF THE CYCLE
     Route: 042
     Dates: start: 20100217
  2. XELODA [Suspect]
     Indication: GASTROOESOPHAGEAL CANCER
     Dosage: DAY 1-15; TABS
     Route: 048
     Dates: start: 20100217, end: 20100224

REACTIONS (6)
  - VOMITING [None]
  - NAUSEA [None]
  - BLOOD CREATININE INCREASED [None]
  - WEIGHT DECREASED [None]
  - HYPOKALAEMIA [None]
  - FATIGUE [None]
